FAERS Safety Report 5279845-4 (Version None)
Quarter: 2007Q1

REPORT INFORMATION
  Report Type: 
  Country: None (occurrence: None)
  Receive Date: 20070329
  Receipt Date: 20070326
  Transmission Date: 20070707
  Serious: Yes (Life-Threatening, Hospitalization, Disabling)
  Sender: FDA-Public Use
  Company Number: HQWYE492124JAN07

PATIENT
  Sex: Male
  Weight: 99.88 kg

DRUGS (1)
  1. ADVIL [Suspect]
     Indication: HEADACHE
     Route: 048
     Dates: start: 20061030, end: 20061105

REACTIONS (12)
  - ACUTE RESPIRATORY DISTRESS SYNDROME [None]
  - ANAEMIA [None]
  - ANOXIC ENCEPHALOPATHY [None]
  - BLOOD GLUCOSE ABNORMAL [None]
  - CARDIO-RESPIRATORY ARREST [None]
  - COMA [None]
  - GASTRIC ULCER PERFORATION [None]
  - LIFE SUPPORT [None]
  - MULTI-ORGAN FAILURE [None]
  - PERITONITIS [None]
  - RENAL FAILURE ACUTE [None]
  - SEPTIC SHOCK [None]
